FAERS Safety Report 7309048-0 (Version None)
Quarter: 2011Q1

REPORT INFORMATION
  Report Type: 
  Country: None (occurrence: None)
  Receive Date: 20110223
  Receipt Date: 20110216
  Transmission Date: 20110831
  Serious: Yes (Hospitalization)
  Sender: FDA-Public Use
  Company Number: US-US-EMD SERONO, INC.-7031818

PATIENT
  Sex: Male

DRUGS (2)
  1. NEURONTIN [Concomitant]
  2. REBIF [Suspect]
     Indication: PRODUCT USED FOR UNKNOWN INDICATION
     Route: 058
     Dates: start: 20100913, end: 20110101

REACTIONS (2)
  - SCROTAL INFECTION [None]
  - INJECTION SITE PAIN [None]
